FAERS Safety Report 12013134 (Version 1)
Quarter: 2016Q1

REPORT INFORMATION
  Report Type: Report from Study
  Country: US (occurrence: US)
  Receive Date: 20160205
  Receipt Date: 20160205
  Transmission Date: 20160526
  Serious: Yes (Other)
  Sender: FDA-Public Use
  Company Number: US-KADMON PHARMACEUTICALS, LLC-KAD201602-000405

PATIENT
  Age: 61 Year
  Sex: Female
  Weight: 63.5 kg

DRUGS (4)
  1. RIBAVIRIN. [Suspect]
     Active Substance: RIBAVIRIN
     Indication: HEPATITIS C
     Dosage: TABLET
     Route: 048
  2. XANAX [Concomitant]
     Active Substance: ALPRAZOLAM
  3. VIEKIRA PAK [Suspect]
     Active Substance: DASABUVIR\OMBITASVIR\PARITAPREVIR\RITONAVIR
     Indication: HEPATITIS C
     Dosage: TABLET; 2 PINK AND 1 BEIGE AM, 1 BEIGE QHS
     Route: 048
     Dates: start: 201510
  4. NORVASC [Concomitant]
     Active Substance: AMLODIPINE BESYLATE

REACTIONS (4)
  - Constipation [Unknown]
  - Weight increased [Unknown]
  - Blindness [Recovered/Resolved]
  - Headache [Recovered/Resolved]

NARRATIVE: CASE EVENT DATE: 201510
